FAERS Safety Report 5903075-3 (Version None)
Quarter: 2008Q3

REPORT INFORMATION
  Report Type: 
  Country: None (occurrence: None)
  Receive Date: 20080930
  Receipt Date: 20080919
  Transmission Date: 20090109
  Serious: Yes (Death)
  Sender: FDA-Public Use
  Company Number: DE-ROCHE-580040

PATIENT
  Sex: Female
  Weight: 62 kg

DRUGS (12)
  1. METHOXY POLYETHYLENE GLYCOL-EPOETIN BETA [Suspect]
     Route: 042
     Dates: start: 20080505
  2. CLEXANE [Concomitant]
     Dosage: FREQUENCY: 1-0-0.
     Route: 058
     Dates: start: 20080107
  3. FERRLECIT [Concomitant]
     Route: 042
     Dates: start: 20080111
  4. ZEMPLAR [Concomitant]
     Route: 042
     Dates: start: 20070818
  5. OMEPRAZOLE [Concomitant]
     Dosage: FREQUENCY: 1-0-0.
     Route: 048
     Dates: start: 20070114
  6. METOPROLOL [Concomitant]
     Dosage: FREQUENCY REPORTED: 1-0-1.
     Route: 048
     Dates: start: 20080428
  7. RAMIPRIL [Concomitant]
     Dosage: FREQUENCY REPORTED: 0-0-1.
     Route: 048
     Dates: start: 20080428, end: 20080626
  8. RAMIPRIL [Concomitant]
     Dosage: FREQUENCY REPORTED: 1-0-1.
     Route: 048
     Dates: start: 20080627
  9. SIMVASTATIN [Concomitant]
     Dosage: FREQUENCY REPROTED: 0-0-1.
     Route: 048
     Dates: start: 20080428
  10. CETIRIZIN [Concomitant]
     Dosage: FREQUENCY REPORTED: 0-0-0-1.
     Route: 048
     Dates: start: 20080502
  11. CALCIUMACETAT-NEFRO [Concomitant]
     Dosage: REPORTED AS CA-ACETAT NEFRO. FREQUENCY REPORTED: 1-1-1.
     Route: 048
     Dates: start: 20070818
  12. ALENDRONIC ACID [Concomitant]
     Dosage: REPORTED AS ALENDRON.
     Route: 048
     Dates: start: 20070427

REACTIONS (1)
  - CEREBROVASCULAR ACCIDENT [None]
